FAERS Safety Report 23076545 (Version 1)
Quarter: 2023Q4

REPORT INFORMATION
  Report Type: Spontaneous
  Country: ES (occurrence: ES)
  Receive Date: 20231017
  Receipt Date: 20231017
  Transmission Date: 20240109
  Serious: Yes (Other)
  Sender: FDA-Public Use
  Company Number: ES-WOODWARD-2023-ES-000153

PATIENT
  Age: 85 Year
  Sex: Male

DRUGS (1)
  1. DUTASTERIDE\TAMSULOSIN HYDROCHLORIDE [Suspect]
     Active Substance: DUTASTERIDE\TAMSULOSIN HYDROCHLORIDE
     Indication: Benign prostatic hyperplasia
     Dosage: UNKNOWN
     Route: 065

REACTIONS (3)
  - Urinary retention [Unknown]
  - Prostatomegaly [Unknown]
  - Therapy cessation [Unknown]
